FAERS Safety Report 21421174 (Version 3)
Quarter: 2024Q1

REPORT INFORMATION
  Report Type: Report from Study
  Country: US (occurrence: US)
  Receive Date: 20221007
  Receipt Date: 20240201
  Transmission Date: 20240410
  Serious: Yes (Hospitalization, Other)
  Sender: FDA-Public Use
  Company Number: US-ABBVIE-22K-163-4445585-00

PATIENT
  Age: 45 Year
  Sex: Male

DRUGS (2)
  1. SKYRIZI [Suspect]
     Active Substance: RISANKIZUMAB-RZAA
     Indication: Psoriasis
     Route: 058
     Dates: start: 20211117
  2. SKYRIZI [Suspect]
     Active Substance: RISANKIZUMAB-RZAA
     Route: 058

REACTIONS (8)
  - Hip arthroplasty [Recovered/Resolved]
  - Arthritis [Not Recovered/Not Resolved]
  - Postoperative thrombosis [Unknown]
  - COVID-19 [Recovering/Resolving]
  - Feeling abnormal [Unknown]
  - Night sweats [Not Recovered/Not Resolved]
  - Postoperative thrombosis [Recovered/Resolved]
  - Hip arthroplasty [Recovered/Resolved]

NARRATIVE: CASE EVENT DATE: 20220804
